FAERS Safety Report 9136987 (Version 1)
Quarter: 2013Q1

REPORT INFORMATION
  Report Type: Report from Study
  Country: US (occurrence: US)
  Receive Date: 20130304
  Receipt Date: 20130304
  Transmission Date: 20140127
  Serious: No
  Sender: FDA-Public Use
  Company Number: US-ABBOTT-12P-163-0918638-00

PATIENT
  Sex: Male
  Weight: 122.58 kg

DRUGS (15)
  1. ANDROGEL 1% [Suspect]
     Indication: BLOOD TESTOSTERONE DECREASED
     Dates: start: 2011, end: 2011
  2. ANDROGEL 1.62% [Suspect]
     Indication: BLOOD TESTOSTERONE DECREASED
     Dates: start: 2011, end: 2011
  3. ANDROGEL 1.62% [Suspect]
     Dates: start: 2011, end: 2012
  4. ANDROGEL 1.62% [Suspect]
     Dates: start: 2012
  5. SYNTHROID [Concomitant]
     Indication: HYPOTHYROIDISM
  6. BENICAR [Concomitant]
     Indication: HYPERTENSION
  7. PROZAC [Concomitant]
     Indication: DEPRESSION
  8. LASIX [Concomitant]
     Indication: HYPERTENSION
  9. METFORMIN [Concomitant]
     Indication: WEIGHT CONTROL
  10. XYZAL [Concomitant]
     Indication: HYPERSENSITIVITY
  11. VITAMIN D [Concomitant]
     Indication: VITAMIN SUPPLEMENTATION
  12. KLONOPIN [Concomitant]
     Indication: PAIN IN EXTREMITY
  13. MS-CONTIN [Concomitant]
     Indication: PAIN
  14. ADVAIR [Concomitant]
     Indication: ASTHMA
  15. ALBUTEROL [Concomitant]
     Indication: ASTHMA

REACTIONS (9)
  - Abdominal distension [Recovered/Resolved]
  - Blood testosterone abnormal [Not Recovered/Not Resolved]
  - Gynaecomastia [Recovered/Resolved]
  - Nausea [Recovered/Resolved]
  - Mood swings [Not Recovered/Not Resolved]
  - Depression [Not Recovered/Not Resolved]
  - Breast pain [Not Recovered/Not Resolved]
  - Galactorrhoea [Not Recovered/Not Resolved]
  - Drug administered at inappropriate site [Recovered/Resolved]
